FAERS Safety Report 7739818-6 (Version None)
Quarter: 2011Q3

REPORT INFORMATION
  Report Type: 
  Country: None (occurrence: None)
  Receive Date: 20110906
  Receipt Date: 20110830
  Transmission Date: 20111222
  Serious: Yes (Death)
  Sender: FDA-Public Use
  Company Number: DKLU1072780

PATIENT
  Age: 3 Year
  Sex: Female

DRUGS (1)
  1. SABRIL [Suspect]
     Indication: EPILEPSY
     Dosage: 1750 MG MILLIGRAM(S), 2 IN 1 D, ORAL
     Route: 048
     Dates: start: 20100624, end: 20110823

REACTIONS (4)
  - MALAISE [None]
  - RESUSCITATION [None]
  - UNRESPONSIVE TO STIMULI [None]
  - VIRAL INFECTION [None]
